FAERS Safety Report 8402083-0 (Version None)
Quarter: 2012Q2

REPORT INFORMATION
  Report Type: 
  Country: None (occurrence: None)
  Receive Date: 20120601
  Receipt Date: 20120528
  Transmission Date: 20120825
  Serious: Yes (Other)
  Sender: FDA-Public Use
  Company Number: PHFR2012GB003203

PATIENT
  Age: 22 Year
  Sex: Female

DRUGS (2)
  1. CLOMIPRAMINE HCL [Suspect]
     Indication: ANXIETY
     Dosage: 25 MG, TID
     Route: 048
     Dates: start: 20120131
  2. FERROUS FUMARATE [Concomitant]
     Indication: SERUM FERRITIN INCREASED
     Dosage: 210 MG, TID
     Dates: start: 20111209

REACTIONS (2)
  - VAGINAL HAEMORRHAGE [None]
  - HAEMATEMESIS [None]
